FAERS Safety Report 23938071 (Version 1)
Quarter: 2024Q2

REPORT INFORMATION
  Report Type: Spontaneous
  Country: NL (occurrence: NL)
  Receive Date: 20240604
  Receipt Date: 20240604
  Transmission Date: 20240716
  Serious: Yes (Other)
  Sender: FDA-Public Use
  Company Number: None

PATIENT
  Age: 57 Year
  Sex: Male
  Weight: 80 kg

DRUGS (1)
  1. PROPOFOL [Suspect]
     Active Substance: PROPOFOL
     Indication: Endotracheal intubation
     Dosage: 300 MG (MILLIGRAM) 1 H (HOURS), DOSAGE TEXT: 300 MG/HOUR, PROPOFOL INJECTION
     Route: 065
     Dates: start: 20240519, end: 20240521

REACTIONS (9)
  - Blood triglycerides increased [Unknown]
  - Transaminases increased [Unknown]
  - Blood creatine phosphokinase increased [Unknown]
  - Atrial fibrillation [Unknown]
  - Renal failure [Unknown]
  - Metabolic acidosis [Unknown]
  - Propofol infusion syndrome [Unknown]
  - Cardiac failure [Unknown]
  - Hyperkalaemia [Unknown]
